FAERS Safety Report 12190800 (Version 1)
Quarter: 2016Q1

REPORT INFORMATION
  Report Type: Spontaneous
  Country: US (occurrence: None)
  Receive Date: 20160317
  Receipt Date: 20160317
  Transmission Date: 20160526
  Serious: No
  Sender: FDA-Public Use
  Company Number: None

PATIENT
  Age: 64 Year
  Sex: Male
  Weight: 104.9 kg

DRUGS (1)
  1. LEDIPASVIR/SOFOSBUVIR [Suspect]
     Active Substance: LEDIPASVIR\SOFOSBUVIR
     Indication: DEEP VEIN THROMBOSIS
     Dates: start: 20151002, end: 20151225

REACTIONS (5)
  - Feeling hot [None]
  - Peripheral swelling [None]
  - Thrombosis [None]
  - Deep vein thrombosis [None]
  - Erythema [None]

NARRATIVE: CASE EVENT DATE: 20151116
